FAERS Safety Report 6286798-9 (Version None)
Quarter: 2009Q3

REPORT INFORMATION
  Report Type: 
  Country: None (occurrence: None)
  Receive Date: 20090728
  Receipt Date: 20090721
  Transmission Date: 20100115
  Serious: Yes (Other)
  Sender: FDA-Public Use
  Company Number: ES-AVENTIS-200917327GDDC

PATIENT
  Age: 46 Year
  Sex: Female

DRUGS (2)
  1. LANTUS [Suspect]
     Indication: DIABETES MELLITUS
     Route: 058
     Dates: start: 20071001
  2. METFORMIN [Concomitant]
     Dates: start: 20081201

REACTIONS (2)
  - BREAST CANCER [None]
  - BREAST CANCER FEMALE [None]
